FAERS Safety Report 8970370 (Version 1)
Quarter: 2012Q4

REPORT INFORMATION
  Report Type: 
  Country: US (occurrence: US)
  Receive Date: 20121218
  Receipt Date: 20121218
  Transmission Date: 20130627
  Serious: No
  Sender: FDA-Public Use
  Company Number: US-BRISTOL-MYERS SQUIBB COMPANY-17051855

PATIENT
  Age: 5 None
  Sex: Female

DRUGS (5)
  1. ABILIFY [Suspect]
     Indication: DEPRESSION
     Dosage: changed to Abilify 2mg PRN
restarted
  2. CORTISOL [Suspect]
     Indication: ADRENAL DISORDER
  3. MELATONIN [Concomitant]
     Indication: INSOMNIA
  4. NEURONTIN [Concomitant]
     Indication: ANXIETY
     Dosage: dose at mid night
  5. XANAX [Concomitant]
     Indication: ANXIETY
     Dosage: 1 Df:0.5-1mg

REACTIONS (4)
  - Eosinophilia [Recovering/Resolving]
  - Myalgia [Unknown]
  - Arthralgia [Unknown]
  - Insomnia [Unknown]
